FAERS Safety Report 7297395-0 (Version None)
Quarter: 2011Q1

REPORT INFORMATION
  Report Type: 
  Country: None (occurrence: None)
  Receive Date: 20110216
  Receipt Date: 20110203
  Transmission Date: 20110831
  Serious: Yes (Disabling)
  Sender: FDA-Public Use
  Company Number: US-ELI_LILLY_AND_COMPANY-US201102001596

PATIENT
  Sex: Male

DRUGS (4)
  1. FUROSEMIDE [Concomitant]
  2. CLORAZEPATE DIPOTASSIUM [Concomitant]
  3. PROZAC [Suspect]
     Indication: DEPRESSION
     Dosage: 20 MG, DAILY (1/D)
     Dates: start: 19960101, end: 20110101
  4. AMITRIPTYLINE [Concomitant]

REACTIONS (6)
  - MALAISE [None]
  - DRUG WITHDRAWAL SYNDROME [None]
  - MEMORY IMPAIRMENT [None]
  - ANXIETY [None]
  - FEELING JITTERY [None]
  - DEPRESSION [None]
